FAERS Safety Report 22536688 (Version 1)
Quarter: 2023Q2

REPORT INFORMATION
  Report Type: Spontaneous
  Country: NL (occurrence: NL)
  Receive Date: 20230608
  Receipt Date: 20230608
  Transmission Date: 20230721
  Serious: Yes (Hospitalization, Other)
  Sender: FDA-Public Use
  Company Number: NL-SUN PHARMACEUTICAL INDUSTRIES LTD-2023R1-392640

PATIENT
  Age: 24 Day
  Sex: Male
  Weight: 3 kg

DRUGS (1)
  1. SODIUM CHLORIDE [Suspect]
     Active Substance: SODIUM CHLORIDE
     Indication: Congenital megacolon
     Dosage: 150 MILLILITER, BID
     Route: 054

REACTIONS (5)
  - Acidosis hyperchloraemic [Recovered/Resolved]
  - Diarrhoea [Recovered/Resolved]
  - Respiratory failure [Recovered/Resolved]
  - Cardiovascular insufficiency [Recovered/Resolved]
  - Weight decreased [Recovered/Resolved]
